FAERS Safety Report 8388993-1 (Version None)
Quarter: 2012Q2

REPORT INFORMATION
  Report Type: 
  Country: None (occurrence: None)
  Receive Date: 20120528
  Receipt Date: 20120522
  Transmission Date: 20120825
  Serious: Yes (Other)
  Sender: FDA-Public Use
  Company Number: US-PFIZER INC-2012112276

PATIENT
  Sex: Male
  Weight: 80 kg

DRUGS (15)
  1. SUTENT [Suspect]
     Dosage: 25 MG, UNK
     Dates: start: 20120308, end: 20120404
  2. TAMSULOSIN [Concomitant]
     Dosage: 0.4 MG, UNK
  3. VITAMIN B-12 [Concomitant]
     Dosage: UNK
  4. VITAMIN C [Concomitant]
     Dosage: UNK
  5. SUTENT [Suspect]
     Dosage: 25 MG, 1X/DAY
     Dates: start: 20120228, end: 20120101
  6. SUTENT [Suspect]
     Dosage: 37.5 MG (12.5 TIMES 3 CAPSULES), 1X/DAY
     Dates: start: 20120419, end: 20120507
  7. VITAMIN D [Concomitant]
     Dosage: UNK
  8. POTASSIUM GLUCONATE [Concomitant]
     Dosage: UNK
  9. NAMENDA [Concomitant]
     Dosage: 5 MG, 2X/DAY
  10. ARICEPT [Concomitant]
     Indication: DEMENTIA
     Dosage: 10 MG, 1X/DAY AT NIGHT
  11. SUTENT [Suspect]
     Dosage: 50 MG, EVERY OTHER DAY
     Dates: start: 20120211, end: 20120201
  12. SUTENT [Suspect]
     Indication: METASTATIC RENAL CELL CARCINOMA
     Dosage: 50 MG, CYCLIC (FOR 28 DAYS, FOLLOWED BY A 14 DAY REST PERIOD)
     Dates: start: 20120201, end: 20120206
  13. GINKO BILOBA [Concomitant]
     Dosage: UNK
  14. CHONDROITIN/GLUCOSAMINE [Concomitant]
     Dosage: UNK
  15. SUTENT [Suspect]
     Dosage: 37.5 MG, CYCLIC DAILY FOR 28 DAYS, FOLLOW BY A 14 DAY REST
     Dates: start: 20120510

REACTIONS (7)
  - PARAESTHESIA [None]
  - HEPATIC FUNCTION ABNORMAL [None]
  - ABDOMINAL TENDERNESS [None]
  - RENAL IMPAIRMENT [None]
  - DIARRHOEA [None]
  - SKIN HYPERTROPHY [None]
  - DYSGEUSIA [None]
